FAERS Safety Report 10995408 (Version 10)
Quarter: 2016Q4

REPORT INFORMATION
  Report Type: Report from Study
  Country: BR (occurrence: BR)
  Receive Date: 20150407
  Receipt Date: 20161116
  Transmission Date: 20170206
  Serious: Yes (Hospitalization, Other)
  Sender: FDA-Public Use
  Company Number: PHHY2015BR040863

PATIENT
  Sex: Female
  Weight: 70 kg

DRUGS (15)
  1. ROSUCOR [Concomitant]
     Active Substance: ROSUVASTATIN CALCIUM
     Indication: BLOOD CHOLESTEROL ABNORMAL
     Dosage: UNK UNK, QD; SINCE 5 MONTHS AGO
     Route: 048
  2. VITAMIN D [Concomitant]
     Active Substance: CHOLECALCIFEROL
     Indication: VITAMIN D DEFICIENCY
     Dosage: UNK UNK, QD; SINCE 1 YEAR AGO
     Route: 048
  3. HYDROCHLOROTHIAZIDE. [Concomitant]
     Active Substance: HYDROCHLOROTHIAZIDE
     Indication: PRODUCT USED FOR UNKNOWN INDICATION
     Dosage: 25 MG, QD
     Route: 048
  4. JANUVIA [Concomitant]
     Active Substance: SITAGLIPTIN PHOSPHATE
     Indication: DIABETES MELLITUS
     Dosage: 100 MG, QD (AFTER BREAKFAST)
     Route: 048
  5. GILENYA [Suspect]
     Active Substance: FINGOLIMOD HYDROCHLORIDE
     Indication: MULTIPLE SCLEROSIS
     Dosage: 0.5 MG, QD (AFTER LUNCH)
     Route: 048
  6. ATENOLOL. [Concomitant]
     Active Substance: ATENOLOL
     Indication: HYPERTENSION
     Dosage: 50 MG, QD; SINCE 10 YEARS
     Route: 048
  7. VENOVAZ [Concomitant]
     Indication: CARDIOVASCULAR DISORDER
     Dosage: 450 MG, QD; SINCE APPROXIMATELY 3 MONTHS AGO
     Route: 048
  8. ATENSINA [Concomitant]
     Active Substance: CLONIDINE
     Indication: HYPERTENSION
     Dosage: 0.100 MG, SINCE 1 YEAR AGO
     Route: 048
  9. GABAPENTIN. [Suspect]
     Active Substance: GABAPENTIN
     Indication: CEREBRAL DISORDER
     Dosage: 600 MG, BID
     Route: 048
  10. OMEPRAZOLE. [Concomitant]
     Active Substance: OMEPRAZOLE
     Indication: ABDOMINAL PAIN UPPER
     Dosage: 40 MG, QD (FASTING) SINCE 2007/2008
     Route: 048
  11. DIAMICRON MR [Concomitant]
     Active Substance: GLICLAZIDE
     Indication: DIABETES MELLITUS
     Dosage: 60 MG, QD (FASTING)
     Route: 048
  12. GLIFAGE [Concomitant]
     Active Substance: METFORMIN HYDROCHLORIDE
     Indication: DIABETES MELLITUS
     Dosage: 1700 MG, BID; APPROXIMATELY 3 MONTHS AGO
     Route: 048
  13. OLEPTAL [Suspect]
     Active Substance: OXCARBAZEPINE
     Indication: CEREBRAL DISORDER
     Dosage: 120 MG, UNK
     Route: 065
  14. REMINYL [Concomitant]
     Active Substance: GALANTAMINE
     Indication: PRODUCT USED FOR UNKNOWN INDICATION
     Dosage: 16 MG, QD
     Route: 048
  15. CLOPIDOGREL BISULFATE. [Concomitant]
     Active Substance: CLOPIDOGREL BISULFATE
     Indication: CEREBROVASCULAR ACCIDENT
     Dosage: 75 MG, QD; SINCE 3 MONTHS AGO
     Route: 048

REACTIONS (21)
  - Blood cholesterol abnormal [Recovering/Resolving]
  - Multiple sclerosis relapse [Recovered/Resolved]
  - Tongue disorder [Recovered/Resolved]
  - Memory impairment [Not Recovered/Not Resolved]
  - Urinary tract infection [Recovering/Resolving]
  - Abasia [Unknown]
  - Dizziness [Not Recovered/Not Resolved]
  - Aggression [Unknown]
  - Mood altered [Unknown]
  - Insomnia [Unknown]
  - Type 2 diabetes mellitus [Recovering/Resolving]
  - Blood triglycerides abnormal [Unknown]
  - Asthenia [Not Recovered/Not Resolved]
  - Stroke in evolution [Not Recovered/Not Resolved]
  - Depression suicidal [Unknown]
  - Temperature intolerance [Unknown]
  - Depression [Recovered/Resolved]
  - Nervousness [Recovered/Resolved]
  - Muscle spasms [Recovering/Resolving]
  - Multiple sclerosis relapse [Recovering/Resolving]
  - Peripheral swelling [Not Recovered/Not Resolved]
